FAERS Safety Report 21451492 (Version 1)
Quarter: 2022Q4

REPORT INFORMATION
  Report Type: Spontaneous
  Country: FR (occurrence: FR)
  Receive Date: 20221013
  Receipt Date: 20221013
  Transmission Date: 20230112
  Serious: Yes (Hospitalization)
  Sender: FDA-Public Use
  Company Number: None

PATIENT
  Age: 35 Year
  Sex: Male

DRUGS (2)
  1. KETOPROFEN [Suspect]
     Active Substance: KETOPROFEN
     Indication: Back pain
     Dosage: UNIT DOSE : 200 MG , DURATION : 3 DAYS
     Route: 065
     Dates: start: 20220821, end: 20220824
  2. VALIUM [Concomitant]
     Active Substance: DIAZEPAM
     Indication: Back pain
     Dosage: SCORED TABLET ,FORM STRENGTH : 5 MG, UNIT DOSE : 5 MG , DURATION : 3 DAYS
     Dates: start: 20220821, end: 20220824

REACTIONS (2)
  - Condition aggravated [Recovering/Resolving]
  - Pneumonia [Recovering/Resolving]

NARRATIVE: CASE EVENT DATE: 20220824
